FAERS Safety Report 8526295 (Version 7)
Quarter: 2013Q3

REPORT INFORMATION
  Report Type: Spontaneous
  Country: US (occurrence: US)
  Receive Date: 20120423
  Receipt Date: 20130903
  Transmission Date: 20140515
  Serious: Yes (Hospitalization, Congenital Anomaly)
  Sender: FDA-Public Use
  Company Number: US-GLAXOSMITHKLINE-A0974452A

PATIENT
  Age: 0 Day
  Sex: Male
  Weight: 2.4 kg

DRUGS (1)
  1. PAXIL [Suspect]
     Indication: PRODUCT USED FOR UNKNOWN INDICATION
     Route: 064

REACTIONS (12)
  - Pierre Robin syndrome [Unknown]
  - Premature baby [Unknown]
  - Cleft palate [Unknown]
  - Respiratory failure [Unknown]
  - Brain injury [Unknown]
  - Limb malformation [Unknown]
  - Talipes [Unknown]
  - Bone disorder [Unknown]
  - Jaw disorder [Unknown]
  - Dyspnoea [Unknown]
  - Mild mental retardation [Unknown]
  - Foetal exposure during pregnancy [Unknown]
